FAERS Safety Report 6648484-2 (Version None)
Quarter: 2010Q1

REPORT INFORMATION
  Report Type: 
  Country: None (occurrence: None)
  Receive Date: 20100319
  Receipt Date: 20100312
  Transmission Date: 20100710
  Serious: Yes (Other)
  Sender: FDA-Public Use
  Company Number: DSA_42787_2010

PATIENT
  Sex: Male

DRUGS (4)
  1. XENAZINE [Suspect]
     Indication: TIC
     Dosage: 12.5 MG TID ORAL
     Route: 048
     Dates: start: 20100302, end: 20100311
  2. CLONAZEPAM [Concomitant]
  3. BACLOFEN [Concomitant]
  4. LYRICA [Concomitant]

REACTIONS (3)
  - ANXIETY [None]
  - GAIT DISTURBANCE [None]
  - SOMNOLENCE [None]
